FAERS Safety Report 8543765-X (Version None)
Quarter: 2012Q3

REPORT INFORMATION
  Report Type: 
  Country: None (occurrence: None)
  Receive Date: 20120727
  Receipt Date: 20120720
  Transmission Date: 20120928
  Serious: Yes (Hospitalization)
  Sender: FDA-Public Use
  Company Number: US-JNJFOC-20120711221

PATIENT
  Age: 69 Year
  Sex: Male
  Weight: 68.04 kg

DRUGS (4)
  1. NIACIN [Concomitant]
     Indication: BLOOD CHOLESTEROL
     Route: 065
  2. MINOXIDIL [Suspect]
     Indication: HAIR GROWTH ABNORMAL
     Dosage: UNSPECIFIED DOSE (A LITTLE BIT)
     Route: 061
     Dates: start: 20110101, end: 20120712
  3. MINOXIDIL [Suspect]
     Route: 061
  4. FLOMAX [Concomitant]
     Indication: PROSTATIC DISORDER
     Route: 065

REACTIONS (1)
  - CHEST DISCOMFORT [None]
